FAERS Safety Report 5967868-9 (Version None)
Quarter: 2008Q4

REPORT INFORMATION
  Report Type: 
  Country: None (occurrence: None)
  Receive Date: 20081126
  Receipt Date: 20081118
  Transmission Date: 20090506
  Serious: Yes (Hospitalization)
  Sender: FDA-Public Use
  Company Number: FR-ASTRAZENECA-2008CG01687

PATIENT
  Age: 29454 Day
  Sex: Male

DRUGS (11)
  1. ATACAND [Suspect]
     Route: 048
     Dates: start: 20070101
  2. LASIX [Interacting]
     Indication: CARDIAC FAILURE
     Route: 048
     Dates: start: 20081008, end: 20081014
  3. ESIDRIX [Interacting]
     Indication: CARDIAC FAILURE
     Route: 048
     Dates: start: 20081008, end: 20081014
  4. ALDACTONE [Interacting]
     Route: 048
     Dates: start: 20081008, end: 20081015
  5. DIAMOX [Interacting]
     Route: 048
     Dates: start: 20081008, end: 20081015
  6. DIAMOX [Interacting]
     Route: 048
     Dates: start: 20081018
  7. PREVISCAN [Concomitant]
     Route: 048
     Dates: start: 20070101
  8. CORDARONE [Concomitant]
     Indication: ATRIAL FIBRILLATION
     Dosage: 200 MG DAILY FIVE DAYS OUT OF SEVEN
     Route: 048
     Dates: start: 20070101, end: 20081020
  9. GAVISCON [Concomitant]
     Route: 048
     Dates: start: 20081008
  10. KALEORID [Concomitant]
     Route: 048
     Dates: start: 20081008, end: 20081014
  11. LANTUS [Concomitant]
     Indication: TYPE 2 DIABETES MELLITUS
     Route: 058

REACTIONS (4)
  - DEHYDRATION [None]
  - DRUG INTERACTION [None]
  - HYPONATRAEMIA [None]
  - RENAL FAILURE ACUTE [None]
